FAERS Safety Report 6336839-5 (Version None)
Quarter: 2009Q3

REPORT INFORMATION
  Report Type: 
  Country: None (occurrence: None)
  Receive Date: 20090828
  Receipt Date: 20090828
  Transmission Date: 20100115
  Serious: Yes (Life-Threatening, Other)
  Sender: FDA-Public Use
  Company Number: None

PATIENT
  Age: 60 Year
  Sex: Female
  Weight: 71.6683 kg

DRUGS (1)
  1. MELOXICAM [Suspect]
     Indication: RHEUMATOID ARTHRITIS
     Dosage: 15 MG 1 X DAY PO; 5 MG 1 X EVERY TWO DAYS PO
     Route: 048
     Dates: start: 20090729, end: 20090810

REACTIONS (8)
  - BURNING SENSATION [None]
  - DOCUMENTED HYPERSENSITIVITY TO ADMINISTERED DRUG [None]
  - ERYTHEMA [None]
  - FACE OEDEMA [None]
  - OEDEMA PERIPHERAL [None]
  - PRODUCT LABEL ISSUE [None]
  - RASH [None]
  - TYPE IV HYPERSENSITIVITY REACTION [None]
